FAERS Safety Report 9421260 (Version 1)
Quarter: 2013Q3

REPORT INFORMATION
  Report Type: Report from Study
  Country: BR (occurrence: BR)
  Receive Date: 20130725
  Receipt Date: 20130725
  Transmission Date: 20140515
  Serious: Yes (Other)
  Sender: FDA-Public Use
  Company Number: PHHY2013BR079478

PATIENT
  Sex: Male
  Weight: 60 kg

DRUGS (2)
  1. DIOVAN [Suspect]
     Indication: BLOOD PRESSURE ABNORMAL
     Dosage: 160 MG, DAILY
     Route: 048
  2. SERTRALINE [Concomitant]

REACTIONS (4)
  - Skin cancer [Recovered/Resolved]
  - Hearing impaired [Recovered/Resolved]
  - Ear discomfort [Recovered/Resolved]
  - Blood pressure fluctuation [Recovered/Resolved]
